FAERS Safety Report 25544009 (Version 1)
Quarter: 2025Q3

REPORT INFORMATION
  Report Type: Report from Study
  Country: PA (occurrence: PA)
  Receive Date: 20250711
  Receipt Date: 20250711
  Transmission Date: 20251020
  Serious: Yes (Hospitalization, Other)
  Sender: DAIICHI
  Company Number: PA-AstraZeneca-CH-00838901A

PATIENT
  Sex: Female

DRUGS (1)
  1. ENHERTU [Suspect]
     Active Substance: FAM-TRASTUZUMAB DERUXTECAN-NXKI
     Indication: Breast cancer
     Dosage: 5.4 MG/KG, ONCE EVERY 3 WK
     Route: 042

REACTIONS (7)
  - Renal failure [Recovered/Resolved with Sequelae]
  - Pulmonary oedema [Recovering/Resolving]
  - Pneumonia [Recovering/Resolving]
  - Constipation [Recovering/Resolving]
  - Back pain [Recovering/Resolving]
  - Haemoglobin decreased [Recovered/Resolved with Sequelae]
  - Blood albumin decreased [Recovered/Resolved with Sequelae]

NARRATIVE: CASE EVENT DATE: 20250301
